FAERS Safety Report 21333749 (Version 2)
Quarter: 2022Q3

REPORT INFORMATION
  Report Type: Spontaneous
  Country: US (occurrence: US)
  Receive Date: 20220914
  Receipt Date: 20220915
  Transmission Date: 20221026
  Serious: Yes (Other)
  Sender: FDA-Public Use
  Company Number: US-PFIZER INC-202201157044

PATIENT
  Sex: Male

DRUGS (3)
  1. PAXLOVID [Interacting]
     Active Substance: NIRMATRELVIR\RITONAVIR
     Indication: COVID-19 treatment
     Dosage: 3 DF, 2X/DAY (3 TABLETS TWICE A DAY)
  2. HYDROXYUREA [Interacting]
     Active Substance: HYDROXYUREA
     Indication: Monoclonal gammopathy
     Dosage: 500 MG, 2X/DAY
  3. HYDROXYUREA [Interacting]
     Active Substance: HYDROXYUREA
     Indication: Polycythaemia

REACTIONS (3)
  - Plasma cell myeloma [Unknown]
  - Haemoglobin decreased [Unknown]
  - Potentiating drug interaction [Unknown]

NARRATIVE: CASE EVENT DATE: 20220912
